FAERS Safety Report 9191167 (Version 3)
Quarter: 2018Q4

REPORT INFORMATION
  Report Type: Report from Study
  Country: JP (occurrence: JP)
  Receive Date: 20130326
  Receipt Date: 20181017
  Transmission Date: 20190205
  Serious: Yes (Other)
  Sender: FDA-Public Use
  Company Number: PHHY2013JP029149

PATIENT
  Age: 76 Year
  Sex: Female

DRUGS (13)
  1. PRIMPERAN [Concomitant]
     Active Substance: METOCLOPRAMIDE HYDROCHLORIDE
     Indication: PRODUCT USED FOR UNKNOWN INDICATION
     Dosage: UNK
     Route: 041
     Dates: start: 20091112, end: 20091115
  2. OZEX [Concomitant]
     Active Substance: TOSUFLOXACIN TOSYLATE
     Indication: PRODUCT USED FOR UNKNOWN INDICATION
     Dosage: UNK UKN, UNK
     Route: 048
     Dates: start: 20091118, end: 20091127
  3. ADALAT [Concomitant]
     Active Substance: NIFEDIPINE
     Indication: PROPHYLAXIS
     Dosage: 40 MG, QD
     Route: 048
     Dates: start: 20091112, end: 20091125
  4. TASIGNA [Suspect]
     Active Substance: NILOTINIB
     Indication: CHRONIC MYELOID LEUKAEMIA
     Dosage: 400 MG, BID
     Route: 048
     Dates: start: 20091106, end: 20100127
  5. LAXOBERON [Concomitant]
     Active Substance: SODIUM PICOSULFATE
     Indication: PROPHYLAXIS
     Dosage: 10 ML, QD
     Route: 048
     Dates: start: 20091118
  6. ATARAX-P [Concomitant]
     Active Substance: HYDROXYZINE HYDROCHLORIDE
     Indication: PRODUCT USED FOR UNKNOWN INDICATION
     Route: 065
     Dates: start: 20091112, end: 20091115
  7. ISOSORBIDE DINITRATE. [Concomitant]
     Active Substance: ISOSORBIDE DINITRATE
     Indication: PROPHYLAXIS
     Dosage: 40 MG, QD
     Route: 062
     Dates: start: 20091112
  8. TASIGNA [Suspect]
     Active Substance: NILOTINIB
     Dosage: 200 MG, BID
     Route: 048
     Dates: start: 20100217, end: 20100330
  9. METHYCOBAL [Concomitant]
     Active Substance: METHYLCOBALAMIN
     Indication: PRODUCT USED FOR UNKNOWN INDICATION
     Dosage: UNK UKN, UNK
     Route: 041
     Dates: start: 20091112, end: 20091115
  10. TASIGNA [Suspect]
     Active Substance: NILOTINIB
     Dosage: 200 MG, QD
     Route: 048
     Dates: start: 20100128, end: 20100216
  11. TASIGNA [Suspect]
     Active Substance: NILOTINIB
     Dosage: 300 MG, BID
     Route: 048
     Dates: start: 20100401, end: 20100723
  12. ADETPHOS-L [Concomitant]
     Indication: PRODUCT USED FOR UNKNOWN INDICATION
     Dosage: UNK UKN, UNK
     Route: 041
     Dates: start: 20091112, end: 20091115
  13. MEYLON [Concomitant]
     Active Substance: SODIUM BICARBONATE
     Indication: PRODUCT USED FOR UNKNOWN INDICATION
     Dosage: UNK UKN, UNK
     Route: 065
     Dates: start: 20091113, end: 20091115

REACTIONS (8)
  - Hepatic function abnormal [Recovered/Resolved with Sequelae]
  - Pruritus [Recovered/Resolved]
  - Dyspepsia [Recovering/Resolving]
  - Vertigo [Recovering/Resolving]
  - Pyrexia [Recovered/Resolved]
  - Aspartate aminotransferase increased [Unknown]
  - Vomiting [Recovering/Resolving]
  - Alanine aminotransferase increased [Unknown]

NARRATIVE: CASE EVENT DATE: 20091112
